FAERS Safety Report 8046385-9 (Version None)
Quarter: 2012Q1

REPORT INFORMATION
  Report Type: 
  Country: None (occurrence: None)
  Receive Date: 20120113
  Receipt Date: 20120109
  Transmission Date: 20120608
  Serious: Yes (Life-Threatening)
  Sender: FDA-Public Use
  Company Number: FR-ASTRAZENECA-2012SE01430

PATIENT
  Age: 38 Year
  Sex: Female

DRUGS (2)
  1. SYMBICORT [Suspect]
     Indication: ASTHMA
     Dosage: 320/9 UG PER DOSE
     Route: 055
  2. SYMBICORT [Suspect]
     Dosage: 160/4.5 UG PER DOSE
     Route: 055

REACTIONS (1)
  - ANAPHYLACTIC SHOCK [None]
